FAERS Safety Report 15302889 (Version 2)
Quarter: 2018Q3

REPORT INFORMATION
  Report Type: Report from Study
  Country: BR (occurrence: BR)
  Receive Date: 20180821
  Receipt Date: 20180827
  Transmission Date: 20181010
  Serious: Yes (Other)
  Sender: FDA-Public Use
  Company Number: PHHY2018BR078302

PATIENT
  Age: 65 Year
  Sex: Female
  Weight: 50 kg

DRUGS (5)
  1. EVISTA [Concomitant]
     Active Substance: RALOXIFENE HYDROCHLORIDE
     Indication: OSTEOPOROSIS
     Dosage: 60 MG, QD (5 YEARS AGO STARTED)
     Route: 048
     Dates: start: 2013
  2. YELLOW FEVER VACCINE NOS [Concomitant]
     Active Substance: YELLOW FEVER VIRUS STRAIN 17D-204 LIVE ANTIGEN
     Indication: YELLOW FEVER
     Dosage: UNK
     Route: 065
  3. ACLASTA [Suspect]
     Active Substance: ZOLEDRONIC ACID
     Indication: OSTEOPOROSIS
     Dosage: 1 DF, Q12MO (5/100 MG/ML)
     Route: 042
  4. INFLUENZA VACCINE [Suspect]
     Active Substance: INFLUENZA VIRUS VACCINE
     Indication: INFLUENZA
     Dosage: UNK
     Route: 065
  5. GLUTAMINE [Concomitant]
     Active Substance: GLUTAMINE
     Indication: SUPPLEMENTATION THERAPY
     Dosage: 5 MG, QD ( 1 SACHET A DAY)
     Route: 048
     Dates: start: 2001

REACTIONS (14)
  - Bronchial disorder [Recovering/Resolving]
  - Interstitial lung disease [Recovered/Resolved]
  - Angiopathy [Recovered/Resolved]
  - Nasopharyngitis [Recovered/Resolved]
  - Abdominal discomfort [Unknown]
  - Muscle spasms [Recovering/Resolving]
  - Lung infection [Recovered/Resolved]
  - Cough [Recovering/Resolving]
  - Catarrh [Recovering/Resolving]
  - Productive cough [Unknown]
  - Hypertension [Recovering/Resolving]
  - Gastritis [Recovering/Resolving]
  - Thyroid mass [Recovering/Resolving]
  - Influenza [Recovering/Resolving]

NARRATIVE: CASE EVENT DATE: 2017
